FAERS Safety Report 8886565 (Version 2)
Quarter: 2013Q1

REPORT INFORMATION
  Report Type: Spontaneous
  Country: BR (occurrence: BR)
  Receive Date: 20121105
  Receipt Date: 20130321
  Transmission Date: 20140127
  Serious: Yes (Other)
  Sender: FDA-Public Use
  Company Number: PHHY2012BR099879

PATIENT
  Age: 16 Year
  Sex: Male
  Weight: 88 kg

DRUGS (3)
  1. RITALINA [Suspect]
     Indication: ATTENTION DEFICIT/HYPERACTIVITY DISORDER
     Dosage: 3 TO 4 TABLETS A DAY
     Route: 048
  2. RITALIN LA [Suspect]
     Indication: ATTENTION DEFICIT/HYPERACTIVITY DISORDER
     Dosage: 1 TABLET A DAY
     Route: 048
  3. RITALIN LA [Suspect]
     Dosage: 1 DF, UNK
     Dates: start: 201210

REACTIONS (4)
  - Foot fracture [Recovered/Resolved]
  - Reading disorder [Not Recovered/Not Resolved]
  - Dysgraphia [Not Recovered/Not Resolved]
  - Irritability [Recovered/Resolved]
